FAERS Safety Report 11544379 (Version 1)
Quarter: 2015Q3

REPORT INFORMATION
  Report Type: Spontaneous
  Country: US (occurrence: None)
  Receive Date: 20150923
  Receipt Date: 20150923
  Transmission Date: 20151125
  Serious: Yes (Other)
  Sender: FDA-Public Use
  Company Number: None

PATIENT
  Age: 41 Year
  Sex: Female
  Weight: 70.31 kg

DRUGS (2)
  1. BUPROPRION 300 MG [Suspect]
     Active Substance: BUPROPION
     Indication: DEPRESSION
     Dosage: 30
     Route: 048
     Dates: start: 20150801, end: 20150922
  2. BUPROPRION 300 MG [Suspect]
     Active Substance: BUPROPION
     Indication: MENOPAUSAL SYMPTOMS
     Dosage: 30
     Route: 048
     Dates: start: 20150801, end: 20150922

REACTIONS (5)
  - Palpitations [None]
  - Heart rate increased [None]
  - Anxiety [None]
  - Condition aggravated [None]
  - Dry mouth [None]

NARRATIVE: CASE EVENT DATE: 20150801
